FAERS Safety Report 5483392-4 (Version None)
Quarter: 2007Q4

REPORT INFORMATION
  Report Type: 
  Country: None (occurrence: None)
  Receive Date: 20071009
  Receipt Date: 20071009
  Transmission Date: 20080405
  Serious: Yes (Hospitalization)
  Sender: FDA-Public Use
  Company Number: None

PATIENT
  Sex: Female
  Weight: 99.7913 kg

DRUGS (9)
  1. XELOX [Suspect]
     Indication: COLON CANCER METASTATIC
     Dosage: 2650 MG DAILY PO
     Route: 048
     Dates: start: 20070803, end: 20070922
  2. AVASTIN [Concomitant]
  3. OXALIPLATIN [Concomitant]
  4. LOMOTIL [Concomitant]
  5. COMPAZINE [Concomitant]
  6. LEXAPRO [Concomitant]
  7. LORAZEPAM [Concomitant]
  8. AMBIEN [Concomitant]
  9. POTASSIUM CHLORIDE [Concomitant]

REACTIONS (2)
  - DEHYDRATION [None]
  - INTESTINAL OBSTRUCTION [None]
